FAERS Safety Report 5687978-3 (Version None)
Quarter: 2008Q1

REPORT INFORMATION
  Report Type: 
  Country: None (occurrence: None)
  Receive Date: 20080328
  Receipt Date: 20061109
  Transmission Date: 20080703
  Serious: No
  Sender: FDA-Public Use
  Company Number: US-BAYER-US-2006-035150

PATIENT
  Age: 35 Year
  Sex: Female

DRUGS (4)
  1. MIRENA [Suspect]
     Indication: MENSTRUATION IRREGULAR
     Route: 015
     Dates: start: 20060601
  2. NEURONTIN [Concomitant]
  3. SCOLINE [Concomitant]
  4. ZELNORM /USA/ [Concomitant]

REACTIONS (2)
  - BREAST PAIN [None]
  - BREAST SWELLING [None]
